FAERS Safety Report 7700215-0 (Version None)
Quarter: 2011Q3

REPORT INFORMATION
  Report Type: 
  Country: None (occurrence: None)
  Receive Date: 20110822
  Receipt Date: 20110809
  Transmission Date: 20111222
  Serious: Yes (Hospitalization, Other)
  Sender: FDA-Public Use
  Company Number: US-ELI_LILLY_AND_COMPANY-US201009007167

PATIENT
  Sex: Female
  Weight: 72.018 kg

DRUGS (18)
  1. FORTEO [Suspect]
     Dosage: 20 UG, DAILY (1/D)
     Route: 030
  2. FORTEO [Suspect]
     Dosage: 20 UG, QD
  3. RESTASIS [Concomitant]
  4. LEVOTHYROXINE SODIUM [Concomitant]
     Dosage: 110 UG, DAILY (1/D)
  5. CALCIUM W/VITAMIN D NOS [Concomitant]
     Dosage: 1200 MG, DAILY (1/D)
  6. ASCORBIC ACID [Concomitant]
  7. MELATONIN [Concomitant]
  8. VITAMIN B-12 [Concomitant]
  9. TRAMADOL HCL [Concomitant]
     Indication: PAIN
     Dosage: UNK, EACH EVENING
  10. SYNTHROID [Concomitant]
     Dosage: 100 UG, UNKNOWN
     Route: 065
  11. DIAZIDE [Concomitant]
     Dosage: UNK, DAILY (1/D)
  12. ASPIRIN [Concomitant]
     Dosage: 81 MG, UNK
  13. FORTEO [Suspect]
     Dosage: 20 UG, DAILY (1/D)
     Route: 030
  14. CYMBALTA [Concomitant]
     Dosage: 30 MG, DAILY (1/D)
  15. FORTEO [Suspect]
     Indication: OSTEOPOROSIS
     Dosage: 20 UG, DAILY (1/D)
     Route: 030
     Dates: start: 20100903
  16. FORTEO [Suspect]
     Dosage: 20 UG, QD
  17. PLAQUENIL [Concomitant]
     Indication: RHEUMATOID ARTHRITIS
     Dosage: UNK, 2/D
  18. VITAMINS NOS [Concomitant]

REACTIONS (13)
  - STRESS FRACTURE [None]
  - PAIN [None]
  - THERAPEUTIC RESPONSE DECREASED [None]
  - WHEELCHAIR USER [None]
  - BONE DISORDER [None]
  - LOWER LIMB FRACTURE [None]
  - INCORRECT ROUTE OF DRUG ADMINISTRATION [None]
  - INJECTION SITE HAEMATOMA [None]
  - FEMUR FRACTURE [None]
  - JOINT DISLOCATION [None]
  - IMPAIRED HEALING [None]
  - RECTAL SPASM [None]
  - MUSCLE SPASMS [None]
